FAERS Safety Report 10223396 (Version 1)
Quarter: 2014Q2

REPORT INFORMATION
  Report Type: Spontaneous
  Country: US (occurrence: None)
  Receive Date: 20140606
  Receipt Date: 20140606
  Transmission Date: 20141212
  Serious: Yes (Life-Threatening, Hospitalization)
  Sender: FDA-Public Use
  Company Number: None

PATIENT
  Age: 45 Year
  Sex: Female

DRUGS (4)
  1. 5-FLUOROURACIL [Suspect]
     Indication: SMALL INTESTINE ADENOCARCINOMA
     Dosage: 1200 MG/M2 OVER 46 HOURS, INTRAVENOUS
     Route: 042
     Dates: start: 20140422, end: 20140424
  2. OXYCODONE/ACETAMINOPHEN [Concomitant]
  3. ONDANSETRON [Concomitant]
  4. FOLFOX [Concomitant]

REACTIONS (6)
  - Nausea [None]
  - Vomiting [None]
  - Blood bilirubin increased [None]
  - Sinus tachycardia [None]
  - Acute myocardial infarction [None]
  - Arteriospasm coronary [None]
